FAERS Safety Report 12273236 (Version 1)
Quarter: 2016Q2

REPORT INFORMATION
  Report Type: Spontaneous
  Country: US (occurrence: US)
  Receive Date: 20160415
  Receipt Date: 20160415
  Transmission Date: 20160815
  Serious: No
  Sender: FDA-Public Use
  Company Number: US-ROCHE-769978

PATIENT
  Age: 54 Year
  Sex: Male

DRUGS (6)
  1. CLONAZEPAM. [Concomitant]
     Active Substance: CLONAZEPAM
     Indication: INSOMNIA
     Route: 065
  2. COPEGUS [Suspect]
     Active Substance: RIBAVIRIN
     Indication: HEPATITIS C
     Dosage: IN DIVIDED DOSES.
     Route: 048
     Dates: start: 20110404, end: 20110406
  3. ZOVIRAX [Concomitant]
     Active Substance: ACYCLOVIR
     Indication: HERPES VIRUS INFECTION
     Dosage: TAKEN DAILY.
     Route: 065
  4. PEGASYS [Suspect]
     Active Substance: PEGINTERFERON ALFA-2A
     Indication: HEPATITIS C
     Dosage: FORM: PRE-FILLED SYRINGE.
     Route: 058
     Dates: start: 20110404, end: 20110406
  5. ADVAIR HFA [Concomitant]
     Active Substance: FLUTICASONE PROPIONATE\SALMETEROL XINAFOATE
     Indication: ASTHMA
     Dosage: OTHER INDICATION: COPD. TAKEN DAILY.
     Route: 065
  6. SPIRIVA [Concomitant]
     Active Substance: TIOTROPIUM BROMIDE MONOHYDRATE
     Indication: ASTHMA
     Dosage: OTHER INDICATION: COPD. TAKEN DAILY.
     Route: 065

REACTIONS (13)
  - Pyrexia [Unknown]
  - Depression [Unknown]
  - Chills [Unknown]
  - Arthralgia [Unknown]
  - Muscle spasms [Unknown]
  - Amnesia [Unknown]
  - Headache [Unknown]
  - Hyperhidrosis [Unknown]
  - Decreased appetite [Unknown]
  - Irritability [Unknown]
  - Agitation [Unknown]
  - Tremor [Unknown]
  - Loss of consciousness [Unknown]

NARRATIVE: CASE EVENT DATE: 20110404
